FAERS Safety Report 4732392-8 (Version None)
Quarter: 2005Q3

REPORT INFORMATION
  Report Type: 
  Country: None (occurrence: None)
  Receive Date: 20050803
  Receipt Date: 20050328
  Transmission Date: 20060218
  Serious: Yes (Hospitalization, Other)
  Sender: FDA-Public Use
  Company Number: PHEH2005US03688

PATIENT
  Age: 90 Year
  Sex: Female
  Weight: 121 kg

DRUGS (5)
  1. ALBUTEROL [Concomitant]
     Dosage: UNK, Q4H PRN
  2. FLOVENT [Concomitant]
     Dates: end: 20050303
  3. COMBIVENT [Concomitant]
  4. MIRALAX [Concomitant]
     Indication: CONSTIPATION
  5. DIOVAN [Suspect]
     Indication: HYPERTENSION
     Dosage: 80 MG, QD
     Route: 048
     Dates: start: 20040601, end: 20050210

REACTIONS (15)
  - ANAEMIA [None]
  - ANAPHYLACTIC REACTION [None]
  - ANGIONEUROTIC OEDEMA [None]
  - BLOOD GLUCOSE INCREASED [None]
  - BLOOD UREA INCREASED [None]
  - CHRONIC OBSTRUCTIVE PULMONARY DISEASE [None]
  - DYSPNOEA [None]
  - HAEMOGLOBIN DECREASED [None]
  - HYPERSENSITIVITY [None]
  - JOINT SWELLING [None]
  - PRURITUS [None]
  - RASH [None]
  - RESPIRATORY DISORDER [None]
  - SWELLING FACE [None]
  - UPPER RESPIRATORY TRACT INFECTION [None]
